FAERS Safety Report 16824216 (Version 1)
Quarter: 2019Q3

REPORT INFORMATION
  Report Type: Spontaneous
  Country: CN (occurrence: CN)
  Receive Date: 20190918
  Receipt Date: 20190918
  Transmission Date: 20191005
  Serious: Yes (Other)
  Sender: FDA-Public Use
  Company Number: CN-GLAXOSMITHKLINE-CN2019APC163257

PATIENT

DRUGS (4)
  1. CEFUROXIME SODIUM. [Suspect]
     Active Substance: CEFUROXIME SODIUM
     Indication: INFECTION PROPHYLAXIS
     Dosage: 1.5 G, UNK (1.5 G IVGTT ST)
     Route: 042
  2. CEFTAZIDIME. [Suspect]
     Active Substance: CEFTAZIDIME
     Indication: INTRACRANIAL INFECTION
     Dosage: 2 G, TID (IVGTT Q8 H)
     Route: 042
  3. CEFUROXIME SODIUM. [Suspect]
     Active Substance: CEFUROXIME SODIUM
     Dosage: 0.75 G, UNK (0.75 G IVGTT Q8 H)
  4. VANCOMYCIN [Concomitant]
     Active Substance: VANCOMYCIN
     Indication: INTRACRANIAL INFECTION
     Dosage: 1 G, BID
     Route: 042

REACTIONS (4)
  - Pathogen resistance [Unknown]
  - Drug ineffective [Unknown]
  - Incorrect dose administered [Unknown]
  - Drug resistance [Unknown]
